FAERS Safety Report 24913637 (Version 1)
Quarter: 2025Q1

REPORT INFORMATION
  Report Type: Report from Study
  Country: US (occurrence: US)
  Receive Date: 20250201
  Receipt Date: 20250201
  Transmission Date: 20250409
  Serious: Yes (Hospitalization)
  Sender: NOVARTIS
  Company Number: US-002147023-NVSC2025US016804

PATIENT
  Sex: Male

DRUGS (1)
  1. KESIMPTA [Suspect]
     Active Substance: OFATUMUMAB
     Indication: Relapsing multiple sclerosis
     Route: 065

REACTIONS (6)
  - Fall [Unknown]
  - Balance disorder [Unknown]
  - Dysstasia [Unknown]
  - Asthenia [Unknown]
  - Pain in extremity [Unknown]
  - Vitamin D decreased [Unknown]
